FAERS Safety Report 8490040-8 (Version None)
Quarter: 2012Q2

REPORT INFORMATION
  Report Type: 
  Country: None (occurrence: None)
  Receive Date: 20120626
  Receipt Date: 20120607
  Transmission Date: 20120825
  Serious: Yes (Congenital Anomaly)
  Sender: FDA-Public Use
  Company Number: ADR-UNK-064

PATIENT
  Age: 1 Day
  Sex: Male
  Weight: 3.0033 kg

DRUGS (2)
  1. LOPINAVIR+RITONAVIR (KALETRA, ALUVIA, LPV/R) [Concomitant]
  2. LAMIVUDINE/ZIDOVUDINE [Suspect]
     Indication: ACQUIRED IMMUNODEFICIENCY SYNDROME
     Dosage: 1 COURSE 2 TAB/CAPS + ORAL
     Route: 048
     Dates: start: 20110406

REACTIONS (2)
  - MATERNAL DRUGS AFFECTING FOETUS [None]
  - CONGENITAL ANOMALY [None]
